FAERS Safety Report 20937664 (Version 1)
Quarter: 2022Q2

REPORT INFORMATION
  Report Type: Spontaneous
  Country: US (occurrence: None)
  Receive Date: 20220608
  Receipt Date: 20220608
  Transmission Date: 20220721
  Serious: Yes (Hospitalization)
  Sender: FDA-Public Use
  Company Number: None

PATIENT
  Age: 30 Year
  Sex: Female
  Weight: 50 kg

DRUGS (1)
  1. BEBTELOVIMAB [Suspect]
     Active Substance: BEBTELOVIMAB
     Indication: COVID-19
     Dosage: FREQUENCY : ONCE;?
     Route: 041
     Dates: start: 20220601, end: 20220601

REACTIONS (16)
  - Resuscitation [None]
  - Infusion related reaction [None]
  - Hypersensitivity [None]
  - Nasopharyngitis [None]
  - Cough [None]
  - Respiratory tract congestion [None]
  - Pain [None]
  - Chills [None]
  - Chest discomfort [None]
  - Dyspnoea [None]
  - Feeling hot [None]
  - Flushing [None]
  - Head discomfort [None]
  - Dizziness [None]
  - Rash [None]
  - Abdominal discomfort [None]

NARRATIVE: CASE EVENT DATE: 20220601
